FAERS Safety Report 6406538-X (Version None)
Quarter: 2009Q4

REPORT INFORMATION
  Report Type: 
  Country: None (occurrence: None)
  Receive Date: 20091019
  Receipt Date: 20091013
  Transmission Date: 20100525
  Serious: Yes (Death, Life-Threatening, Hospitalization)
  Sender: FDA-Public Use
  Company Number: CH-AMGEN-UK277872

PATIENT
  Sex: Male

DRUGS (8)
  1. PANITUMUMAB [Suspect]
     Indication: SQUAMOUS CELL CARCINOMA
     Route: 042
     Dates: start: 20080422, end: 20080513
  2. UNSPECIFIED ANTINEOPLASTIC AGENT [Concomitant]
  3. CISPLATIN [Concomitant]
     Route: 042
     Dates: start: 20080422, end: 20080515
  4. FLUOROURACIL [Concomitant]
     Route: 042
     Dates: start: 20080422, end: 20080516
  5. MORPHINE [Concomitant]
  6. XYLOCAINE VISCOUS [Concomitant]
  7. JEVITY [Concomitant]
  8. LAXOBERON [Concomitant]

REACTIONS (3)
  - FEEDING DISORDER [None]
  - GENERAL PHYSICAL HEALTH DETERIORATION [None]
  - PNEUMONIA ASPIRATION [None]
